FAERS Safety Report 10457259 (Version 2)
Quarter: 2014Q4

REPORT INFORMATION
  Report Type: Spontaneous
  Country: GB (occurrence: GB)
  Receive Date: 20140916
  Receipt Date: 20141021
  Transmission Date: 20150528
  Serious: Yes (Other)
  Sender: FDA-Public Use
  Company Number: GB-BRISTOL-MYERS SQUIBB COMPANY-21375977

PATIENT
  Age: 33 Year
  Sex: Female

DRUGS (8)
  1. OLANZAPINE. [Interacting]
     Active Substance: OLANZAPINE
  2. THYROXINE [Concomitant]
     Active Substance: LEVOTHYROXINE
  3. ABILIFY [Suspect]
     Active Substance: ARIPIPRAZOLE
     Indication: PARANOIA
     Dosage: ON 14JUL2014 FROM 15MG TO 20 MG.
     Route: 048
     Dates: end: 20140805
  4. DIAZEPAM. [Concomitant]
     Active Substance: DIAZEPAM
  5. ABILIFY [Interacting]
     Active Substance: ARIPIPRAZOLE
     Indication: SCHIZOPHRENIA
     Dosage: ON 14JUL2014 FROM 15MG TO 20 MG.
     Route: 048
     Dates: end: 20140805
  6. ZOPICLONE [Concomitant]
     Active Substance: ZOPICLONE
  7. CLOPIXOL [Interacting]
     Active Substance: ZUCLOPENTHIXOL ACETATE
  8. METFORMIN [Concomitant]
     Active Substance: METFORMIN HYDROCHLORIDE

REACTIONS (6)
  - Psychotic disorder [Recovered/Resolved]
  - Poor quality sleep [Recovering/Resolving]
  - Agitation [Recovered/Resolved]
  - Suicidal ideation [Unknown]
  - Off label use [Unknown]
  - Drug interaction [Unknown]

NARRATIVE: CASE EVENT DATE: 201407
